FAERS Safety Report 8451749 (Version 2)
Quarter: 2013Q2

REPORT INFORMATION
  Report Type: Spontaneous
  Country: US (occurrence: None)
  Receive Date: 20120229
  Receipt Date: 20120523
  Transmission Date: 20140414
  Serious: Yes (Hospitalization)
  Sender: FDA-Public Use
  Company Number: 010614

PATIENT
  Age: 50 Year
  Sex: Female

DRUGS (1)
  1. SAMSCA [Suspect]

REACTIONS (1)
  - HYPERGLYCAEMIA [None]
